FAERS Safety Report 17042017 (Version 1)
Quarter: 2019Q4

REPORT INFORMATION
  Report Type: Other
  Country: GB (occurrence: GB)
  Receive Date: 20191118
  Receipt Date: 20191118
  Transmission Date: 20200122
  Serious: Yes (Life-Threatening, Disabling, Other)
  Sender: FDA-Public Use
  Company Number: GB-GLENMARK PHARMACEUTICALS-2019GMK044308

PATIENT

DRUGS (8)
  1. PROGYNOVA                          /00045402/ [Concomitant]
     Active Substance: ESTRADIOL VALERATE
     Indication: PRODUCT USED FOR UNKNOWN INDICATION
     Dosage: UNK; ONE A DAY OR ALTERNATE DAYS
     Route: 065
     Dates: start: 20180709
  2. IRBESARTAN. [Concomitant]
     Active Substance: IRBESARTAN
     Indication: PRODUCT USED FOR UNKNOWN INDICATION
     Dosage: 1 DF, OD
     Route: 065
     Dates: start: 20180709
  3. INDAPAMIDE. [Concomitant]
     Active Substance: INDAPAMIDE
     Indication: PRODUCT USED FOR UNKNOWN INDICATION
     Dosage: 1 DF, AM (EVERY MORNING)
     Route: 065
     Dates: start: 20180709
  4. TRAMADOL. [Concomitant]
     Active Substance: TRAMADOL
     Indication: PRODUCT USED FOR UNKNOWN INDICATION
     Dosage: UNK; 1-2 UP TO FOUR TIMES DAILY WHEN REQUIRED (MAX 8)
     Route: 065
     Dates: start: 20180904, end: 20180916
  5. VOLTAROL                           /00372303/ [Concomitant]
     Active Substance: DICLOFENAC DIETHYLAMINE
     Indication: PRODUCT USED FOR UNKNOWN INDICATION
     Dosage: 3 DF, OD; APPLY
     Route: 065
     Dates: start: 20180709
  6. GABAPENTIN. [Suspect]
     Active Substance: GABAPENTIN
     Indication: PRODUCT USED FOR UNKNOWN INDICATION
     Dosage: 3 DF, OD
     Route: 065
     Dates: start: 20180709, end: 20180904
  7. GABAPENTIN. [Suspect]
     Active Substance: GABAPENTIN
     Indication: SCIATICA
     Dosage: 300 MG, UNK
     Route: 065
     Dates: start: 20181130
  8. OMEPRAZOLE. [Concomitant]
     Active Substance: OMEPRAZOLE
     Indication: PRODUCT USED FOR UNKNOWN INDICATION
     Dosage: 1 DF, UP TO TWICE DAILY
     Route: 065
     Dates: start: 20180709

REACTIONS (2)
  - Personality change [Recovered/Resolved]
  - Suicidal ideation [Recovered/Resolved]

NARRATIVE: CASE EVENT DATE: 20181130
